FAERS Safety Report 6547115-X (Version None)
Quarter: 2010Q1

REPORT INFORMATION
  Report Type: 
  Country: None (occurrence: None)
  Receive Date: 20100122
  Receipt Date: 20100115
  Transmission Date: 20100710
  Serious: Yes (Other)
  Sender: FDA-Public Use
  Company Number: US-ELI_LILLY_AND_COMPANY-US201001003751

PATIENT
  Sex: Female

DRUGS (6)
  1. BYETTA [Suspect]
     Dates: start: 20090901, end: 20100114
  2. LISINOPRIL [Concomitant]
  3. LEVAQUIN [Concomitant]
  4. METFORMIN [Concomitant]
  5. ASPIRIN [Concomitant]
  6. SIMVASTATIN [Concomitant]

REACTIONS (5)
  - COLOSTOMY [None]
  - DYSPNOEA [None]
  - INFLUENZA LIKE ILLNESS [None]
  - RENAL FAILURE ACUTE [None]
  - SINUS DISORDER [None]
